FAERS Safety Report 9384775 (Version 1)
Quarter: 2013Q3

REPORT INFORMATION
  Report Type: Spontaneous
  Country: BR (occurrence: None)
  Receive Date: 20130701
  Receipt Date: 20130701
  Transmission Date: 20140515
  Serious: Yes (Other)
  Sender: FDA-Public Use
  Company Number: 2013060056

PATIENT
  Age: 52 Year
  Sex: Male

DRUGS (1)
  1. MESALAZINE [Suspect]
     Indication: CROHN^S DISEASE

REACTIONS (4)
  - Cough [None]
  - Pulmonary mass [None]
  - Lymphadenopathy [None]
  - Sarcoidosis [None]
